FAERS Safety Report 5131818-8 (Version None)
Quarter: 2006Q4

REPORT INFORMATION
  Report Type: 
  Country: None (occurrence: None)
  Receive Date: 20061016
  Receipt Date: 20050419
  Transmission Date: 20070319
  Serious: Yes (Death)
  Sender: FDA-Public Use
  Company Number: 2005072942

PATIENT
  Sex: Male

DRUGS (12)
  1. XALATAN [Suspect]
     Indication: ILL-DEFINED DISORDER
     Dosage: INTRAOCULAR
  2. SPIRIVA [Suspect]
     Indication: ILL-DEFINED DISORDER
     Dosage: INHALATION
     Route: 055
  3. COMBIVENT [Suspect]
     Indication: ILL-DEFINED DISORDER
     Dosage: INHALATION
  4. CITALOPRAM HYDROBROMIDE [Suspect]
     Indication: ILL-DEFINED DISORDER
  5. LOSARTAN POTASSIUM [Suspect]
     Indication: ILL-DEFINED DISORDER
  6. MOMETASONE FUROATE [Suspect]
     Indication: ILL-DEFINED DISORDER
  7. OXYGEN (OXYGEN) [Concomitant]
  8. PHOLCODINE TAB [Concomitant]
  9. SALBUTAMOL (SALBUTAMOL) [Concomitant]
  10. SERETIDE MITE (FLUTICASONE PROPIONATE, SALMETEROL XINAFOATE) [Concomitant]
  11. ZOPICLONE (ZOPICLONE) [Concomitant]
  12. NYSTATIN [Concomitant]

REACTIONS (2)
  - CHRONIC OBSTRUCTIVE PULMONARY DISEASE [None]
  - CONDITION AGGRAVATED [None]
